FAERS Safety Report 14174168 (Version 1)
Quarter: 2017Q4

REPORT INFORMATION
  Report Type: Spontaneous
  Country: US (occurrence: None)
  Receive Date: 20171109
  Receipt Date: 20171109
  Transmission Date: 20180321
  Serious: Yes (Other)
  Sender: FDA-Public Use
  Company Number: None

PATIENT
  Age: 64 Year
  Sex: Male
  Weight: 74.84 kg

DRUGS (4)
  1. BRIMONIDINE [Suspect]
     Active Substance: BRIMONIDINE TARTRATE
     Indication: ERYTHEMA
     Route: 047
  2. TIMOLOL. [Concomitant]
     Active Substance: TIMOLOL
  3. BRIMONIDINE [Suspect]
     Active Substance: BRIMONIDINE TARTRATE
     Indication: IRRITABILITY
     Route: 047
  4. LATANOPROST. [Concomitant]
     Active Substance: LATANOPROST

REACTIONS (2)
  - Photophobia [None]
  - Erythema [None]

NARRATIVE: CASE EVENT DATE: 20170829
